FAERS Safety Report 18348230 (Version 1)
Quarter: 2020Q4

REPORT INFORMATION
  Report Type: Spontaneous
  Country: US (occurrence: US)
  Receive Date: 20201005
  Receipt Date: 20201005
  Transmission Date: 20210114
  Serious: Yes (Other)
  Sender: FDA-Public Use
  Company Number: None

PATIENT
  Age: 76 Year
  Sex: Male

DRUGS (6)
  1. LANSOPRAZOLE. [Concomitant]
     Active Substance: LANSOPRAZOLE
  2. OLMESA MEDOX [Concomitant]
  3. METOPROL SUC [Concomitant]
  4. REPATHA [Suspect]
     Active Substance: EVOLOCUMAB
     Indication: CARDIAC DISORDER
     Dosage: ?          OTHER FREQUENCY:EVERY 2 WEEKS;?
     Route: 058
     Dates: start: 20181017
  5. EZETIMIBE. [Concomitant]
     Active Substance: EZETIMIBE
  6. OFLOXACIN. [Concomitant]
     Active Substance: OFLOXACIN

REACTIONS (1)
  - Surgery [None]

NARRATIVE: CASE EVENT DATE: 20201003
